FAERS Safety Report 9549942 (Version 2)
Quarter: 2013Q3

REPORT INFORMATION
  Report Type: Report from Study
  Country: BR (occurrence: BR)
  Receive Date: 20130924
  Receipt Date: 20130924
  Transmission Date: 20140515
  Serious: Yes (Other)
  Sender: FDA-Public Use
  Company Number: ALCN2012BR004740

PATIENT
  Age: 53 Year
  Sex: Male
  Weight: 95 kg

DRUGS (2)
  1. TRAVATAN [Suspect]
     Indication: GLAUCOMA
     Route: 047
     Dates: start: 20120217, end: 201208
  2. GLAFITAL [Concomitant]
     Indication: GLAUCOMA
     Route: 047
     Dates: start: 20120217

REACTIONS (2)
  - Cataract [Not Recovered/Not Resolved]
  - Drug ineffective [Recovered/Resolved]
